FAERS Safety Report 21628155 (Version 3)
Quarter: 2022Q4

REPORT INFORMATION
  Report Type: Report from Study
  Country: US (occurrence: None)
  Receive Date: 20221122
  Receipt Date: 20221220
  Transmission Date: 20230112
  Serious: Yes (Hospitalization, Other)
  Sender: FDA-Public Use
  Company Number: US-Merck Healthcare KGaA-9366160

PATIENT
  Sex: Female

DRUGS (2)
  1. MAVENCLAD [Suspect]
     Active Substance: CLADRIBINE
     Indication: Multiple sclerosis
     Dosage: YEAR ONE MONTH ONE THERAPY: 2 TABLETS ON DAYS 1 TO 4 AND 1 TABLET ON DAY 5.
     Route: 048
     Dates: start: 20211026, end: 20211030
  2. MAVENCLAD [Suspect]
     Active Substance: CLADRIBINE
     Dosage: YEAR ONE MONTH TWO THERAPY: 2 TABLETS ON DAYS 1 TO 3 AND 1 TABLET ON DAYS 4 AND 5.
     Route: 048
     Dates: start: 20211124, end: 20211128

REACTIONS (4)
  - Infection [Recovered/Resolved]
  - Haematochezia [Unknown]
  - Blood urine present [Unknown]
  - Urinary tract infection [Recovered/Resolved]
